FAERS Safety Report 10584128 (Version 1)
Quarter: 2014Q4

REPORT INFORMATION
  Report Type: Spontaneous
  Country: SE (occurrence: SE)
  Receive Date: 20141114
  Receipt Date: 20141114
  Transmission Date: 20150529
  Serious: Yes (Other)
  Sender: FDA-Public Use
  Company Number: SE-PFIZER INC-2014312035

PATIENT
  Age: 29 Year
  Sex: Female

DRUGS (1)
  1. SYNARELA [Suspect]
     Active Substance: NAFARELIN ACETATE
     Indication: ENDOMETRIOSIS
     Dosage: 2 DF, DAILY
     Dates: start: 200912, end: 2010

REACTIONS (18)
  - Mood swings [Recovering/Resolving]
  - Nightmare [Recovering/Resolving]
  - Arthralgia [Recovering/Resolving]
  - Apathy [Recovering/Resolving]
  - Rhinalgia [Recovering/Resolving]
  - Paraesthesia [Not Recovered/Not Resolved]
  - Nausea [Recovering/Resolving]
  - Hot flush [Recovering/Resolving]
  - Fatigue [Recovering/Resolving]
  - Depressed mood [Recovering/Resolving]
  - Tearfulness [Recovering/Resolving]
  - Hair colour changes [Recovering/Resolving]
  - Disturbance in attention [Recovering/Resolving]
  - Insomnia [Recovering/Resolving]
  - Decreased appetite [Recovering/Resolving]
  - Temperature intolerance [Recovering/Resolving]
  - Palpitations [Not Recovered/Not Resolved]
  - Hypertrichosis [Recovering/Resolving]

NARRATIVE: CASE EVENT DATE: 20091225
